FAERS Safety Report 16264313 (Version 2)
Quarter: 2019Q2

REPORT INFORMATION
  Report Type: Spontaneous
  Country: US (occurrence: US)
  Receive Date: 20190502
  Receipt Date: 20190506
  Transmission Date: 20190711
  Serious: No
  Sender: FDA-Public Use
  Company Number: US-PFIZER INC-2019183447

PATIENT
  Age: 72 Year
  Sex: Female
  Weight: 79.83 kg

DRUGS (3)
  1. FLECTOR [Suspect]
     Active Substance: DICLOFENAC EPOLAMINE
     Indication: PAIN
     Dosage: 1.3% CUT ONE PATCH IN HALF AND PUT IT WHERE IT HURTS
     Route: 062
     Dates: start: 201904
  2. TIZANIDINE. [Concomitant]
     Active Substance: TIZANIDINE
     Indication: MYALGIA
     Dosage: 2 MG, AS NEEDED, [TWICE DAILY]
  3. MORPHINE [Concomitant]
     Active Substance: MORPHINE
     Indication: PAIN
     Dosage: 1.5 MG, 4X/DAY
     Route: 048

REACTIONS (3)
  - Intentional product use issue [Unknown]
  - Arthritis [Unknown]
  - Weight decreased [Unknown]
